FAERS Safety Report 18415639 (Version 1)
Quarter: 2020Q4

REPORT INFORMATION
  Report Type: Spontaneous
  Country: ES (occurrence: ES)
  Receive Date: 20201022
  Receipt Date: 20201022
  Transmission Date: 20210114
  Serious: Yes (Life-Threatening, Other)
  Sender: FDA-Public Use
  Company Number: ES-TEVA-2020-ES-1839930

PATIENT
  Age: 69 Year
  Sex: Male
  Weight: 90 kg

DRUGS (5)
  1. DOCETAXEL (7394A) [Suspect]
     Active Substance: DOCETAXEL
     Indication: LUNG ADENOCARCINOMA
     Dosage: 140MG EVERY 21D (70MG / M2, UNIT DOSE: 70 MG/M2
     Route: 041
     Dates: start: 20200611, end: 20200611
  2. OMEPRAZOL 20 MG 28 CAPSULAS [Concomitant]
  3. ENALAPRIL 20 MG 30 COMPRIMIDOS [Concomitant]
  4. ORFIDAL 1 MG COMPRIMIDOS, 25 COMPRIMIDOS [Concomitant]
     Active Substance: LORAZEPAM
  5. AMLODIPINO 10 MG COMPRIMIDO [Concomitant]
     Active Substance: AMLODIPINE BESYLATE

REACTIONS (3)
  - Tachypnoea [Recovered/Resolved]
  - Erythema [Recovered/Resolved]
  - Dizziness [Recovered/Resolved]

NARRATIVE: CASE EVENT DATE: 20200612
